FAERS Safety Report 4786086-3 (Version None)
Quarter: 2005Q4

REPORT INFORMATION
  Report Type: 
  Country: None (occurrence: None)
  Receive Date: 20051003
  Receipt Date: 20051003
  Transmission Date: 20060501
  Serious: Yes (Hospitalization, Disabling, Other)
  Sender: FDA-Public Use
  Company Number: None

PATIENT
  Age: 54 Year
  Sex: Male
  Weight: 92.5338 kg

DRUGS (2)
  1. CORICIDIN D SRT [Suspect]
     Indication: NASOPHARYNGITIS
     Dosage: 2 TABS/2 DOSE ORAL
     Route: 048
     Dates: start: 19971229, end: 19971231
  2. ACCUTANE [Suspect]
     Dosage: ORAL
     Route: 048

REACTIONS (11)
  - AGGRESSION [None]
  - ALCOHOLIC [None]
  - CEREBRAL HAEMORRHAGE [None]
  - CEREBROVASCULAR ACCIDENT [None]
  - CONDITION AGGRAVATED [None]
  - CONVULSION [None]
  - GENERAL PHYSICAL HEALTH DETERIORATION [None]
  - HEPATIC CIRRHOSIS [None]
  - NAUSEA [None]
  - PSYCHOTIC DISORDER [None]
  - VOMITING [None]
